FAERS Safety Report 13239218 (Version 1)
Quarter: 2017Q1

REPORT INFORMATION
  Report Type: Spontaneous
  Country: BR (occurrence: BR)
  Receive Date: 20170216
  Receipt Date: 20170216
  Transmission Date: 20170428
  Serious: Yes (Other)
  Sender: FDA-Public Use
  Company Number: BR-PFIZER INC-2017063080

PATIENT
  Sex: Female

DRUGS (2)
  1. XALATAN [Suspect]
     Active Substance: LATANOPROST
     Route: 047
  2. TIMOLOL. [Suspect]
     Active Substance: TIMOLOL
     Dosage: UNK, 2XDAY
     Route: 047

REACTIONS (4)
  - Blindness [Unknown]
  - Incorrect product storage [Unknown]
  - Ocular hyperaemia [Unknown]
  - Product use issue [Unknown]
